FAERS Safety Report 15756476 (Version 2)
Quarter: 2019Q1

REPORT INFORMATION
  Report Type: Spontaneous
  Country: US (occurrence: US)
  Receive Date: 20181224
  Receipt Date: 20190123
  Transmission Date: 20190417
  Serious: No
  Sender: FDA-Public Use
  Company Number: US-GLAXOSMITHKLINE-US2018229130

PATIENT
  Sex: Female

DRUGS (1)
  1. ABREVA [Suspect]
     Active Substance: DOCOSANOL
     Indication: ORAL HERPES
     Dosage: UNK,3 TO 4 TIMES A DAY
     Route: 061
     Dates: start: 20181212

REACTIONS (3)
  - Inappropriate schedule of product administration [Unknown]
  - Product complaint [Unknown]
  - Incorrect product administration duration [Unknown]
